FAERS Safety Report 6031647-7 (Version None)
Quarter: 2008Q4

REPORT INFORMATION
  Report Type: 
  Country: None (occurrence: None)
  Receive Date: 20081222
  Receipt Date: 20081013
  Transmission Date: 20090506
  Serious: No
  Sender: FDA-Public Use
  Company Number: US-WYE-H06383508

PATIENT
  Age: 50 Year
  Sex: Female
  Weight: 58.57 kg

DRUGS (6)
  1. PRISTIQ [Suspect]
     Indication: ANXIETY
     Dosage: 50 MG 1X PER 1 DAY, ORAL
     Route: 048
     Dates: start: 20081010, end: 20081012
  2. PRISTIQ [Suspect]
     Indication: DEPRESSION
     Dosage: 50 MG 1X PER 1 DAY, ORAL
     Route: 048
     Dates: start: 20081010, end: 20081012
  3. IMITREX (SUMATRIPTAN SUCCINATE) [Concomitant]
  4. FIORINAL [Concomitant]
  5. ALLEGRA [Concomitant]
  6. NASACORT [Concomitant]

REACTIONS (3)
  - DECREASED APPETITE [None]
  - HEADACHE [None]
  - NAUSEA [None]
